FAERS Safety Report 5529456-8 (Version None)
Quarter: 2007Q4

REPORT INFORMATION
  Report Type: 
  Country: None (occurrence: None)
  Receive Date: 20071129
  Receipt Date: 20071119
  Transmission Date: 20080405
  Serious: Yes (Disabling)
  Sender: FDA-Public Use
  Company Number: US-PURDUE-USA_2007_0030311

PATIENT
  Sex: Male

DRUGS (2)
  1. OXYCONTIN [Suspect]
     Indication: BACK PAIN
     Dosage: 60 MG, BID
     Dates: end: 20071101
  2. OXYCONTIN [Suspect]
     Indication: BACK PAIN
     Dosage: 5 MG, SEE TEXT

REACTIONS (6)
  - CONSTIPATION [None]
  - HYPERHIDROSIS [None]
  - INADEQUATE ANALGESIA [None]
  - INTENTIONAL DRUG MISUSE [None]
  - VISUAL ACUITY REDUCED [None]
  - WEIGHT INCREASED [None]
